FAERS Safety Report 14961835 (Version 1)
Quarter: 2018Q2

REPORT INFORMATION
  Report Type: Spontaneous
  Country: FR (occurrence: FR)
  Receive Date: 20180601
  Receipt Date: 20180601
  Transmission Date: 20180711
  Serious: Yes (Hospitalization)
  Sender: FDA-Public Use
  Company Number: FR-TEVA-2018-FR-899693

PATIENT
  Age: 67 Year
  Sex: Male
  Weight: 55 kg

DRUGS (14)
  1. INNOHEP [Concomitant]
     Active Substance: TINZAPARIN SODIUM
     Indication: DEEP VEIN THROMBOSIS
     Dosage: 1 DOSAGE FORMS DAILY;
     Route: 058
  2. CISPLATIN. [Suspect]
     Active Substance: CISPLATIN
     Indication: LUNG ADENOCARCINOMA
     Route: 041
     Dates: start: 20180124, end: 20180124
  3. DAFALGAN CODEINE, SCORED EFFERVESCENT TABLET [Concomitant]
     Indication: PAIN
     Route: 048
     Dates: start: 20180118
  4. PREDNISOLONE BIOGARAN 20 MG, SCORED EFFERVESCENT TABLET [Concomitant]
     Dosage: 1.5 TABLETS MORNING AND EVENING THE DAY BEFORE AND ON CHEMOTHERAPY, 2 IN THE MORNING AND 1 IN THE EV
     Route: 048
     Dates: start: 20180123
  5. SERETIDE [Concomitant]
     Active Substance: FLUTICASONE PROPIONATE\SALMETEROL XINAFOATE
     Indication: ASTHMA
     Dosage: 2 DOSAGE FORMS DAILY;
     Route: 055
     Dates: start: 20171115
  6. EMEND 80 MG, CAPSULE [Concomitant]
     Indication: PROPHYLAXIS OF NAUSEA AND VOMITING
     Dosage: 80 MG TO D + 1 AND D + 2 OF CHEMOTHERAPY
     Route: 048
     Dates: start: 20180125
  7. CARBOPLATIN. [Suspect]
     Active Substance: CARBOPLATIN
     Indication: LUNG ADENOCARCINOMA
     Route: 041
     Dates: start: 20180214, end: 20180214
  8. KARDEGIC [Concomitant]
     Active Substance: ASPIRIN DL-LYSINE
     Indication: DEEP VEIN THROMBOSIS
     Dosage: 75 MILLIGRAM DAILY;
     Route: 048
     Dates: start: 20180123
  9. METOCLOPRAMIDE MYLAN 10 MG, COMPRESS SECABLE [Concomitant]
     Indication: PROPHYLAXIS OF NAUSEA AND VOMITING
     Route: 048
     Dates: start: 20180118
  10. VITAMINE B12 AGUETTANT [Concomitant]
     Active Substance: CYANOCOBALAMIN
     Route: 048
     Dates: start: 20180118
  11. BISOPROLOL BIOGARAN [Concomitant]
     Active Substance: BISOPROLOL FUMARATE
     Indication: ATRIAL FIBRILLATION
     Dosage: 1.25 MILLIGRAM DAILY;
     Route: 048
     Dates: start: 20180124
  12. ACIDE FOLIQUE CCD 0,4 MG, COMPRESSED [Concomitant]
     Dosage: .4 MILLIGRAM DAILY;
     Route: 048
     Dates: start: 20180119
  13. ELIQUIS 5 MG, COATED TABLET [Concomitant]
     Indication: ATRIAL FIBRILLATION
     Dosage: 10 MILLIGRAM DAILY;
     Route: 048
     Dates: start: 20180124
  14. ALIMTA [Suspect]
     Active Substance: PEMETREXED DISODIUM
     Indication: LUNG ADENOCARCINOMA
     Dosage: 900 MG AT THE 1ST CURE, 850 MG AT THE 2ND CURE
     Route: 041
     Dates: start: 20180124, end: 20180214

REACTIONS (3)
  - Enteritis [Not Recovered/Not Resolved]
  - Febrile neutropenia [Unknown]
  - Rash [Not Recovered/Not Resolved]

NARRATIVE: CASE EVENT DATE: 20180130
